FAERS Safety Report 8577663-2 (Version None)
Quarter: 2012Q3

REPORT INFORMATION
  Report Type: 
  Country: None (occurrence: None)
  Receive Date: 20120807
  Receipt Date: 20120730
  Transmission Date: 20120928
  Serious: Yes (Hospitalization, Other)
  Sender: FDA-Public Use
  Company Number: BR-ROCHE-1005091

PATIENT
  Sex: Female

DRUGS (9)
  1. GLYBURIDE [Concomitant]
     Indication: DIABETES MELLITUS
  2. BUDESONIDE [Concomitant]
  3. BEROTEC [Concomitant]
  4. SUMAX [Concomitant]
     Indication: MIGRAINE
  5. DIPIRONE [Concomitant]
  6. FORMOTEROL FUMARATE [Concomitant]
  7. LOSARTAN POTASSIUM [Concomitant]
     Indication: BLOOD PRESSURE
  8. XOLAIR [Suspect]
     Indication: ASTHMA
     Dates: start: 20090701
  9. INSULIN [Concomitant]
     Indication: DIABETES MELLITUS

REACTIONS (17)
  - WHITE BLOOD CELL DISORDER [None]
  - HYPERSENSITIVITY [None]
  - PYREXIA [None]
  - HEADACHE [None]
  - ASTHMA [None]
  - PNEUMONIA [None]
  - LUNG DISORDER [None]
  - FATIGUE [None]
  - FALL [None]
  - INFARCTION [None]
  - PAIN [None]
  - VOMITING [None]
  - BLOOD IMMUNOGLOBULIN E INCREASED [None]
  - WEIGHT INCREASED [None]
  - URINARY TRACT INFECTION [None]
  - DYSPNOEA [None]
  - CHEST PAIN [None]
